FAERS Safety Report 22115614 (Version 2)
Quarter: 2023Q2

REPORT INFORMATION
  Report Type: Spontaneous
  Country: PT (occurrence: PT)
  Receive Date: 20230320
  Receipt Date: 20230419
  Transmission Date: 20230721
  Serious: Yes (Other)
  Sender: FDA-Public Use
  Company Number: None

PATIENT
  Age: 45 Year
  Sex: Female

DRUGS (12)
  1. AJOVY [Suspect]
     Active Substance: FREMANEZUMAB-VFRM
     Indication: Migraine prophylaxis
     Dosage: 1 X MONTH, UNIT DOSE :   225 MG, FREQUENCY TIME : 1 MONTH, DURATION : 2 MONTHS
     Route: 065
     Dates: start: 20221221, end: 20230122
  2. ATORVASTATIN [Concomitant]
     Active Substance: ATORVASTATIN
     Indication: Product used for unknown indication
     Dosage: 20 MILLIGRAM DAILY; ATORVASTATIN 20MG 1CP AFTER DINNER
  3. TROMALYT [Concomitant]
     Active Substance: ASPIRIN
     Indication: Product used for unknown indication
     Dosage: 150 MILLIGRAM DAILY; MODIFIED RELEASE CAPSULE, STRENGTH  : 150 MG , TROMALYT 150MG 1CP AFTER LUNCH
  4. AMITRIPTYLINE HYDROCHLORIDE [Concomitant]
     Active Substance: AMITRIPTYLINE HYDROCHLORIDE
     Indication: Product used for unknown indication
     Dosage: 50 MILLIGRAM DAILY; ADT 25MG ID 2CP AT NIGHT
  5. DULOXETINE [Concomitant]
     Active Substance: DULOXETINE
     Indication: Product used for unknown indication
     Dosage: 120 MILLIGRAM DAILY; DULOXETINE 60MG 1+1
  6. ALPRAZOLAM [Concomitant]
     Active Substance: ALPRAZOLAM
     Indication: Product used for unknown indication
     Dosage: 0,5 CP + 0+1CP+0,5CP, ALPRAZOLAM 0.5 1/2CP + 0 + 1+1/2CP/DAY
  7. flunarizina [Concomitant]
     Indication: Product used for unknown indication
     Dosage: 10 MILLIGRAM DAILY; FLUNARIZINE 1CP AT NIGHT
  8. GABAPENTIN [Concomitant]
     Active Substance: GABAPENTIN
     Indication: Product used for unknown indication
     Dosage: 600 MILLIGRAM DAILY; GABAPENTIN 300MG 1+0+1
  9. Irbesartan+HCTZ [Concomitant]
     Indication: Product used for unknown indication
     Dosage: IRBESARTAN+HCTZ 300+12.5MG ID
  10. LERCANIDIPINE [Concomitant]
     Active Substance: LERCANIDIPINE
     Indication: Product used for unknown indication
     Dosage: 10 MILLIGRAM DAILY; 10MG 1CP AT NIGHT
  11. NAPROXEN [Concomitant]
     Active Substance: NAPROXEN
     Indication: Product used for unknown indication
  12. FROVATRIPTAN [Concomitant]
     Active Substance: FROVATRIPTAN
     Indication: Product used for unknown indication
     Dosage: FROVATRIPTAN 2.5 MG SOS

REACTIONS (2)
  - Joint swelling [Recovered/Resolved]
  - Flushing [Recovered/Resolved]

NARRATIVE: CASE EVENT DATE: 20230122
